FAERS Safety Report 5880537-9 (Version None)
Quarter: 2008Q3

REPORT INFORMATION
  Report Type: 
  Country: None (occurrence: None)
  Receive Date: 20080912
  Receipt Date: 20080601
  Transmission Date: 20090109
  Serious: No
  Sender: FDA-Public Use
  Company Number: US-ABBOTT-08P-163-0454581-00

PATIENT
  Age: 16 Year
  Sex: Female

DRUGS (1)
  1. HUMIRA [Suspect]
     Indication: UVEITIS
     Route: 058

REACTIONS (6)
  - CORNEAL OEDEMA [None]
  - EYE INFLAMMATION [None]
  - GLAUCOMA [None]
  - HERPES OPHTHALMIC [None]
  - HERPES ZOSTER OPHTHALMIC [None]
  - INTRAOCULAR PRESSURE INCREASED [None]
